FAERS Safety Report 4513478-X (Version None)
Quarter: 2004Q4

REPORT INFORMATION
  Report Type: 
  Country: None (occurrence: None)
  Receive Date: 20041130
  Receipt Date: 20041124
  Transmission Date: 20050328
  Serious: Yes (Other)
  Sender: FDA-Public Use
  Company Number: 200419109US

PATIENT
  Sex: Male
  Weight: 104.5 kg

DRUGS (4)
  1. LANTUS [Suspect]
     Indication: DIABETES MELLITUS NON-INSULIN-DEPENDENT
     Dosage: DOSE UNIT: UNITS
     Route: 051
  2. ZITHROMAX [Suspect]
     Indication: SINUSITIS
     Dosage: DOSE: UNK
  3. DECONGESTANTS [Concomitant]
     Indication: SINUSITIS
     Dosage: DOSE: UNK
  4. ANTI-HISTAMINE TAB [Concomitant]
     Indication: SINUSITIS
     Dosage: DOSE: UNK

REACTIONS (2)
  - FACIAL PALSY [None]
  - HYPOAESTHESIA [None]
